FAERS Safety Report 5880580-X (Version None)
Quarter: 2008Q3

REPORT INFORMATION
  Report Type: 
  Country: None (occurrence: None)
  Receive Date: 20080912
  Receipt Date: 20080602
  Transmission Date: 20090109
  Serious: Yes (Other)
  Sender: FDA-Public Use
  Company Number: US-ABBOTT-08P-163-0454652-00

PATIENT
  Sex: Male
  Weight: 81.72 kg

DRUGS (6)
  1. HUMIRA [Suspect]
     Indication: CROHN'S DISEASE
     Route: 058
     Dates: start: 20080516
  2. HUMIRA [Suspect]
     Indication: PSORIASIS
     Dates: start: 20080314, end: 20080516
  3. EPOCORT [Concomitant]
     Indication: CROHN'S DISEASE
     Dosage: 3 PILLS DAILY
     Route: 048
     Dates: start: 20080515
  4. EPOCORT [Concomitant]
     Indication: PSORIASIS
  5. CYCLOSPORINE [Concomitant]
     Indication: PSORIASIS
     Route: 048
     Dates: start: 20080301
  6. URAXATROL [Concomitant]
     Indication: PROSTATIC DISORDER
     Route: 048
     Dates: start: 20080301

REACTIONS (5)
  - ACCIDENTAL EXPOSURE [None]
  - PERICARDIAL EFFUSION [None]
  - PROTEIN TOTAL ABNORMAL [None]
  - SWELLING [None]
  - WEIGHT INCREASED [None]
